FAERS Safety Report 8282908-2 (Version None)
Quarter: 2012Q2

REPORT INFORMATION
  Report Type: 
  Country: None (occurrence: None)
  Receive Date: 20120410
  Receipt Date: 20120404
  Transmission Date: 20120825
  Serious: Yes (Other)
  Sender: FDA-Public Use
  Company Number: GER/UKI/12/0023791

PATIENT
  Age: 46 Year
  Sex: Female

DRUGS (6)
  1. LEVOTHYROXINE SODIUM [Concomitant]
  2. TOBRADEX [Concomitant]
  3. BISOPROLOL FUMARATE [Concomitant]
  4. AMITRIPTYLINE HCL [Suspect]
  5. LEVOTHYROXINE SODIUM [Concomitant]
  6. LAMOTRIGINE [Suspect]
     Indication: EPILEPSY
     Dosage: 200 MG, 1 IN 1 D, ORAL
     Route: 048
     Dates: start: 20000101

REACTIONS (7)
  - DIARRHOEA [None]
  - MALAISE [None]
  - WEIGHT DECREASED [None]
  - NAUSEA [None]
  - OFF LABEL USE [None]
  - PYODERMA GANGRENOSUM [None]
  - VOMITING [None]
